FAERS Safety Report 25877238 (Version 1)
Quarter: 2025Q4

REPORT INFORMATION
  Report Type: Report from Study
  Country: VE (occurrence: VE)
  Receive Date: 20251003
  Receipt Date: 20251003
  Transmission Date: 20260117
  Serious: Yes (Other)
  Sender: SANOFI AVENTIS
  Company Number: VE-DialogSolutions-SAAVPROD-PI825351-C1

PATIENT

DRUGS (1)
  1. ENOXAPARIN SODIUM [Suspect]
     Active Substance: ENOXAPARIN SODIUM
     Indication: Thrombosis prophylaxis
     Dosage: 40 MG, QOD ((5 DOSES INTER-DAILY))

REACTIONS (2)
  - Pulmonary embolism [Unknown]
  - Treatment noncompliance [Unknown]
